FAERS Safety Report 9955607 (Version 1)
Quarter: 2014Q1

REPORT INFORMATION
  Report Type: Report from Study
  Country: US (occurrence: US)
  Receive Date: 20140304
  Receipt Date: 20140304
  Transmission Date: 20141002
  Serious: No
  Sender: FDA-Public Use
  Company Number: US-ABBVIE-13P-163-1075549-00

PATIENT
  Age: 76 Year
  Sex: Female

DRUGS (10)
  1. HUMIRA [Suspect]
     Indication: RHEUMATOID ARTHRITIS
     Dates: start: 200706, end: 20130321
  2. CLOPIDOGREL [Concomitant]
     Indication: CARDIOVASCULAR EVENT PROPHYLAXIS
     Dosage: 75 MG DAILY
  3. ISOSORBIDE [Concomitant]
     Indication: CARDIOVASCULAR EVENT PROPHYLAXIS
     Dosage: 60 MG DAILY
  4. AZOR [Concomitant]
     Indication: HYPERTENSION
     Dosage: 5-40 MG DAILY
  5. BYSTOLIC [Concomitant]
     Indication: HYPERTENSION
     Dosage: 20 MG DAILY
  6. KETOPROFEN [Concomitant]
     Indication: PAIN
     Dosage: 50 MG DAILY
  7. CRESTOR [Concomitant]
     Indication: BLOOD CHOLESTEROL
     Dosage: AT HOUR OF SLEEP
  8. ZETIA [Concomitant]
     Indication: BLOOD CHOLESTEROL
     Dosage: AT HOUR OF SLEEP
  9. VITAMINS NOS [Concomitant]
     Indication: PRODUCT USED FOR UNKNOWN INDICATION
     Dosage: DAILY
  10. LOVAZA [Concomitant]
     Indication: PRODUCT USED FOR UNKNOWN INDICATION
     Dosage: 1 GRAM DAILY

REACTIONS (1)
  - Diverticulitis [Recovered/Resolved]
